FAERS Safety Report 9280229 (Version 2)
Quarter: 2013Q3

REPORT INFORMATION
  Report Type: Report from Study
  Country: NL (occurrence: NL)
  Receive Date: 20130509
  Receipt Date: 20130719
  Transmission Date: 20140515
  Serious: Yes (Other)
  Sender: FDA-Public Use
  Company Number: PHHY2013NL045222

PATIENT
  Sex: Female

DRUGS (3)
  1. ZOMETA [Suspect]
     Indication: BREAST CANCER METASTATIC
     Dosage: 4 MG/100 ML, ONCE EVERY 84 DAYS
     Route: 042
  2. ZOMETA [Suspect]
     Dosage: 4 MG/100 ML, ONCE EVERY 84 DAYS
     Route: 042
     Dates: start: 20120229
  3. ZOMETA [Suspect]
     Dosage: 4 MG/100 ML, ONCE EVERY 84 DAYS
     Route: 042
     Dates: start: 20121109

REACTIONS (1)
  - Terminal state [Unknown]
